FAERS Safety Report 25927720 (Version 1)
Quarter: 2025Q4

REPORT INFORMATION
  Report Type: Spontaneous
  Country: US (occurrence: US)
  Receive Date: 20251016
  Receipt Date: 20251016
  Transmission Date: 20260118
  Serious: No
  Sender: ROCHE
  Company Number: US-ROCHE-10000410177

PATIENT
  Sex: Female
  Weight: 78.92 kg

DRUGS (21)
  1. ACTEMRA [Suspect]
     Active Substance: TOCILIZUMAB
     Indication: Giant cell arteritis
     Dosage: IN THE BELLY
     Route: 058
     Dates: start: 20250926
  2. PREDNISONE [Concomitant]
     Active Substance: PREDNISONE
     Indication: Arteritis
     Dosage: 3 OF 10MG TABLETS, THREE TIMES PER DAY, TAPERING DOSE
     Route: 048
     Dates: start: 20251010
  3. PREDNISONE [Concomitant]
     Active Substance: PREDNISONE
     Dosage: TAPERING DOSE
     Route: 048
     Dates: start: 20250922
  4. FOLIC ACID [Concomitant]
     Active Substance: FOLIC ACID
     Dosage: OVER THE COUNTER
     Route: 048
  5. ALBUTEROL [Concomitant]
     Active Substance: ALBUTEROL
     Indication: Wheezing
     Dosage: 2.5MG/3ML, EVERY 6 HOURS AS NEEDED
     Route: 055
  6. ALBUTEROL [Concomitant]
     Active Substance: ALBUTEROL
     Indication: Dyspnoea
     Dosage: 2 PUFFS INTO LUNGS AS NEEDED
     Route: 055
  7. NORVASC [Concomitant]
     Active Substance: AMLODIPINE BESYLATE
     Indication: Blood pressure measurement
     Route: 048
  8. LIPITOR [Concomitant]
     Active Substance: ATORVASTATIN CALCIUM
     Indication: Blood cholesterol
     Dosage: AT BEDTIME
     Route: 048
  9. PLAVIX [Concomitant]
     Active Substance: CLOPIDOGREL BISULFATE
     Indication: Thrombosis prophylaxis
     Route: 048
  10. GABAPENTIN [Concomitant]
     Active Substance: GABAPENTIN
     Indication: Hypoaesthesia
     Route: 048
     Dates: start: 20251010
  11. GABAPENTIN [Concomitant]
     Active Substance: GABAPENTIN
     Route: 048
     Dates: end: 20251010
  12. NORCO [Concomitant]
     Active Substance: ACETAMINOPHEN\HYDROCODONE BITARTRATE
     Indication: Pain
     Dosage: 5/325MG, EVERY 6 HOURS, AS NEEDED
     Route: 048
     Dates: start: 20250922, end: 202510
  13. SYNTHROID [Concomitant]
     Active Substance: LEVOTHYROXINE SODIUM
     Indication: Hyperthyroidism
     Dosage: IN THE MORNING, BEFORE BREAKFAST
     Route: 048
  14. ATIVAN [Concomitant]
     Active Substance: LORAZEPAM
     Indication: Anxiety
     Dosage: IN THE MORNING
     Route: 048
  15. MAGNESIUM [Concomitant]
     Active Substance: MAGNESIUM
     Indication: Blood magnesium decreased
     Dosage: IN THE MORNING
     Route: 048
  16. ANTIVERT [Concomitant]
     Active Substance: MECLIZINE HYDROCHLORIDE
     Indication: Dizziness
     Dosage: 1 TABLET, THREE TIMES PER DAY, AS NEEDED
     Route: 048
  17. VITAMINS [Concomitant]
     Active Substance: VITAMINS
     Route: 048
  18. ZOLOFT [Concomitant]
     Active Substance: SERTRALINE HYDROCHLORIDE
     Indication: Depression
     Route: 048
  19. ZANAFLEX [Concomitant]
     Active Substance: TIZANIDINE HYDROCHLORIDE
     Indication: Dyspepsia
     Dosage: AT BEDTIME
     Route: 048
  20. AMBIEN [Concomitant]
     Active Substance: ZOLPIDEM TARTRATE
     Dosage: AT BEDTIME
     Route: 048
  21. EPIPEN [Concomitant]
     Active Substance: EPINEPHRINE
     Indication: Hypersensitivity
     Dosage: AS NEEDED

REACTIONS (3)
  - Device issue [Unknown]
  - Accidental exposure to product [Unknown]
  - No adverse event [Unknown]
